FAERS Safety Report 7357038-4 (Version None)
Quarter: 2011Q1

REPORT INFORMATION
  Report Type: 
  Country: None (occurrence: None)
  Receive Date: 20110310
  Receipt Date: 20110310
  Transmission Date: 20110831
  Serious: No
  Sender: FDA-Public Use
  Company Number: None

PATIENT
  Age: 42 Year
  Sex: Female
  Weight: 70.7611 kg

DRUGS (1)
  1. BOTOX [Suspect]
     Indication: SKIN COSMETIC PROCEDURE
     Dosage: 20 UNITS TWO TIMES A YEAR IM
     Route: 030
     Dates: start: 20080303, end: 20090415

REACTIONS (4)
  - DYSGEUSIA [None]
  - GINGIVAL RECESSION [None]
  - LYMPHATIC DISORDER [None]
  - MUSCLE DISORDER [None]
